FAERS Safety Report 24727743 (Version 1)
Quarter: 2024Q4

REPORT INFORMATION
  Report Type: Spontaneous
  Country: CN (occurrence: CN)
  Receive Date: 20241212
  Receipt Date: 20241212
  Transmission Date: 20250115
  Serious: Yes (Disabling)
  Sender: ELI LILLY AND COMPANY
  Company Number: CN-Merck Healthcare KGaA-2024063956

PATIENT
  Age: 61 Year
  Sex: Male
  Weight: 74 kg

DRUGS (3)
  1. ERBITUX [Suspect]
     Active Substance: CETUXIMAB
     Indication: Rectal adenocarcinoma
     Dosage: 500 MG, UNKNOWN
     Route: 041
     Dates: start: 20241018, end: 20241018
  2. IRINOTECAN HYDROCHLORIDE [Suspect]
     Active Substance: IRINOTECAN HYDROCHLORIDE
     Indication: Rectal adenocarcinoma
     Dosage: 320 G, DAILY
     Route: 041
     Dates: start: 20241018, end: 20241018
  3. RALTITREXED [Suspect]
     Active Substance: RALTITREXED
     Indication: Rectal adenocarcinoma
     Dosage: 4 MG, DAILY
     Route: 041
     Dates: start: 20241018, end: 20241018

REACTIONS (1)
  - Hepatic function abnormal [Recovering/Resolving]

NARRATIVE: CASE EVENT DATE: 20241112
